FAERS Safety Report 7506345-0 (Version None)
Quarter: 2011Q2

REPORT INFORMATION
  Report Type: 
  Country: None (occurrence: None)
  Receive Date: 20110526
  Receipt Date: 20101021
  Transmission Date: 20111010
  Serious: No
  Sender: FDA-Public Use
  Company Number: US-ABBOTT-10P-163-0656534-00

PATIENT
  Weight: 80 kg

DRUGS (4)
  1. BENICAR [Suspect]
     Dates: start: 20100621
  2. BENICAR [Suspect]
     Indication: HYPERTENSION
     Dosage: 40/25MG
     Dates: start: 20100501
  3. SIMVASTATIN [Concomitant]
     Indication: BLOOD CHOLESTEROL INCREASED
  4. ZEMPLAR [Suspect]
     Indication: RENAL FAILURE
     Dates: start: 20100501

REACTIONS (3)
  - PRURITUS [None]
  - HYPERTENSION [None]
  - PRURITUS GENERALISED [None]
